APPROVED DRUG PRODUCT: LIDOCAINE HYDROCHLORIDE
Active Ingredient: LIDOCAINE HYDROCHLORIDE
Strength: 10%
Dosage Form/Route: INJECTABLE;INJECTION
Application: A087980 | Product #001
Applicant: ABBOTT LABORATORIES PHARMACEUTICAL PRODUCTS DIV
Approved: Feb 2, 1983 | RLD: No | RS: No | Type: DISCN